FAERS Safety Report 20699212 (Version 1)
Quarter: 2022Q2

REPORT INFORMATION
  Report Type: Report from Study
  Country: US (occurrence: US)
  Receive Date: 20220412
  Receipt Date: 20220412
  Transmission Date: 20220721
  Serious: Yes (Other)
  Sender: FDA-Public Use
  Company Number: US-ABBVIE-22K-163-4351819-00

PATIENT
  Sex: Male

DRUGS (1)
  1. HUMIRA [Suspect]
     Active Substance: ADALIMUMAB
     Indication: Psoriasis
     Route: 058
     Dates: start: 2015

REACTIONS (6)
  - Joint injury [Unknown]
  - Psoriatic arthropathy [Unknown]
  - Osteoarthritis [Unknown]
  - Energy increased [Recovered/Resolved]
  - Road traffic accident [Unknown]
  - COVID-19 [Recovered/Resolved]
